FAERS Safety Report 15008525 (Version 1)
Quarter: 2018Q2

REPORT INFORMATION
  Report Type: Spontaneous
  Country: US (occurrence: US)
  Receive Date: 20180521
  Receipt Date: 20180521
  Transmission Date: 20180711
  Serious: No
  Sender: FDA-Public Use
  Company Number: None

PATIENT
  Age: 60 Year
  Sex: Male

DRUGS (8)
  1. LORAZAPAM [Concomitant]
     Active Substance: LORAZEPAM
  2. MIDAZOLAM [Concomitant]
     Active Substance: MIDAZOLAM HYDROCHLORIDE
  3. ALBUTEROL. [Concomitant]
     Active Substance: ALBUTEROL
  4. DIPHENHYDRAMINE. [Concomitant]
     Active Substance: DIPHENHYDRAMINE
  5. PHENYLEPHRINE [Concomitant]
     Active Substance: PHENYLEPHRINE\PHENYLEPHRINE HYDROCHLORIDE
  6. HALOPERIDOL. [Concomitant]
     Active Substance: HALOPERIDOL
  7. IPRATROPIUM [Concomitant]
     Active Substance: IPRATROPIUM
  8. CEFTRIAXONE. [Suspect]
     Active Substance: CEFTRIAXONE
     Indication: MENINGITIS
     Route: 042
     Dates: start: 20170730, end: 20170730

REACTIONS (9)
  - Mental status changes [None]
  - Increased upper airway secretion [None]
  - Periorbital oedema [None]
  - Wheezing [None]
  - Urticaria [None]
  - Somnolence [None]
  - Respiratory disorder [None]
  - Acidosis [None]
  - Stridor [None]

NARRATIVE: CASE EVENT DATE: 20170730
